FAERS Safety Report 8078425-5 (Version None)
Quarter: 2012Q1

REPORT INFORMATION
  Report Type: 
  Country: None (occurrence: None)
  Receive Date: 20120127
  Receipt Date: 20110131
  Transmission Date: 20120608
  Serious: No
  Sender: FDA-Public Use
  Company Number: PR-ABBOTT-11P-131-0701725-00

PATIENT
  Sex: Male

DRUGS (2)
  1. HYZAAR [Concomitant]
     Indication: HYPERTENSION
     Dosage: 100/25 MG
     Route: 048
  2. HUMIRA [Suspect]
     Indication: PSORIASIS
     Route: 058
     Dates: start: 20091201, end: 20101201

REACTIONS (1)
  - DRUG INEFFECTIVE [None]
